FAERS Safety Report 4364670-9 (Version None)
Quarter: 2004Q2

REPORT INFORMATION
  Report Type: 
  Country: None (occurrence: None)
  Receive Date: 20040526
  Receipt Date: 20031021
  Transmission Date: 20050107
  Serious: No
  Sender: FDA-Public Use
  Company Number: US-GLAXOSMITHKLINE-A0430941A

PATIENT
  Age: 47 Year
  Sex: Male

DRUGS (1)
  1. FLOLAN [Suspect]
     Route: 042
     Dates: start: 20030101

REACTIONS (2)
  - FATIGUE [None]
  - PALPITATIONS [None]
